FAERS Safety Report 9961172 (Version 2)
Quarter: 2014Q1

REPORT INFORMATION
  Report Type: Report from Study
  Country: US (occurrence: US)
  Receive Date: 20140305
  Receipt Date: 20140305
  Transmission Date: 20141002
  Serious: Yes (Other)
  Sender: FDA-Public Use
  Company Number: US-ABBVIE-13P-163-1106784-00

PATIENT
  Age: 62 Year
  Sex: Female
  Weight: 63.56 kg

DRUGS (15)
  1. HUMIRA [Suspect]
     Indication: RHEUMATOID ARTHRITIS
     Route: 058
     Dates: start: 2011, end: 201307
  2. PRINIVIL [Concomitant]
     Indication: HYPERTENSION
  3. COREG CR [Concomitant]
     Indication: HYPERTENSION
  4. TRICOR [Concomitant]
     Indication: BLOOD CHOLESTEROL INCREASED
  5. ZOCOR [Concomitant]
     Indication: BLOOD CHOLESTEROL INCREASED
  6. VITAMIN D [Concomitant]
     Indication: VITAMIN SUPPLEMENTATION
  7. METHOTREXATE [Concomitant]
     Indication: RHEUMATOID ARTHRITIS
  8. LORTAB [Concomitant]
     Indication: RHEUMATOID ARTHRITIS
  9. FERROUS SULFATE [Concomitant]
     Indication: MINERAL SUPPLEMENTATION
  10. CARDIOTEK RX [Concomitant]
     Indication: SUPPLEMENTATION THERAPY
  11. NEXIUM [Concomitant]
     Indication: GASTROOESOPHAGEAL REFLUX DISEASE
  12. ASACOL [Concomitant]
     Indication: GASTRIC DISORDER
  13. ASPIRIN [Concomitant]
     Indication: CARDIAC DISORDER
  14. LASIX [Concomitant]
     Indication: CARDIAC FAILURE CONGESTIVE
  15. KLOR-CON [Concomitant]
     Indication: CARDIAC FAILURE CONGESTIVE

REACTIONS (10)
  - Musculoskeletal pain [Recovered/Resolved]
  - Tendonitis [Recovered/Resolved]
  - Joint range of motion decreased [Recovered/Resolved]
  - Arthralgia [Recovered/Resolved]
  - Arthritis [Not Recovered/Not Resolved]
  - Musculoskeletal pain [Recovered/Resolved]
  - Joint range of motion decreased [Recovered/Resolved]
  - Local swelling [Recovered/Resolved]
  - Arthralgia [Recovered/Resolved]
  - Abasia [Recovered/Resolved]
